FAERS Safety Report 6548547-6 (Version None)
Quarter: 2010Q1

REPORT INFORMATION
  Report Type: 
  Country: None (occurrence: None)
  Receive Date: 20100124
  Receipt Date: 20090817
  Transmission Date: 20100710
  Serious: No
  Sender: FDA-Public Use
  Company Number: US-ALLERGAN-0911409US

PATIENT
  Sex: Female

DRUGS (2)
  1. RESTASIS [Suspect]
     Indication: DRY EYE
     Dosage: HALF OF VIAL PER ONE EYE
     Route: 047
  2. RESTASIS [Suspect]
     Dosage: UNK
     Route: 047

REACTIONS (3)
  - DRUG ADMINISTRATION ERROR [None]
  - EYELID OEDEMA [None]
  - OCULAR HYPERAEMIA [None]
